FAERS Safety Report 25504272 (Version 4)
Quarter: 2025Q3

REPORT INFORMATION
  Report Type: Spontaneous
  Country: TR (occurrence: TR)
  Receive Date: 20250702
  Receipt Date: 20250813
  Transmission Date: 20251021
  Serious: Yes (Congenital Anomaly)
  Sender: EMD SERONO INC
  Company Number: TR-Merck Healthcare KGaA-2025033132

PATIENT
  Sex: Male
  Weight: 3 kg

DRUGS (1)
  1. MAVENCLAD [Suspect]
     Active Substance: CLADRIBINE
     Indication: Multiple sclerosis

REACTIONS (1)
  - Adactyly [Unknown]
